FAERS Safety Report 4374171-X (Version None)
Quarter: 2004Q2

REPORT INFORMATION
  Report Type: 
  Country: None (occurrence: None)
  Receive Date: 20040607
  Receipt Date: 20040601
  Transmission Date: 20050107
  Serious: Yes (Life-Threatening, Hospitalization, Disabling)
  Sender: FDA-Public Use
  Company Number: US-MERCK-0406USA00107

PATIENT
  Age: 63 Year
  Sex: Female

DRUGS (11)
  1. CALCIUM (UNSPECIFIED) [Concomitant]
     Route: 065
  2. CALTRATE [Concomitant]
     Route: 065
  3. LASIX [Concomitant]
     Route: 065
  4. LOPID [Concomitant]
     Route: 065
  5. PREVACID [Concomitant]
     Route: 065
  6. SYNTHROID [Concomitant]
     Route: 065
  7. METOPROLOL [Concomitant]
     Route: 065
  8. RISPERDAL [Concomitant]
     Route: 065
  9. ZOCOR [Suspect]
     Indication: BLOOD CHOLESTEROL INCREASED
     Route: 048
  10. SPIRONOLACTONE [Concomitant]
     Route: 065
  11. COUMADIN [Concomitant]
     Route: 065

REACTIONS (2)
  - CHEST PAIN [None]
  - MUSCULAR WEAKNESS [None]
